FAERS Safety Report 20928950 (Version 1)
Quarter: 2022Q2

REPORT INFORMATION
  Report Type: Report from Study
  Country: NL (occurrence: NL)
  Receive Date: 20220608
  Receipt Date: 20220608
  Transmission Date: 20220720
  Serious: Yes (Death, Hospitalization, Other)
  Sender: FDA-Public Use
  Company Number: NL-BRISTOL-MYERS SQUIBB COMPANY-2022-053446

PATIENT
  Age: 49 Year
  Sex: Female
  Weight: 61.6 kg

DRUGS (8)
  1. IPILIMUMAB [Suspect]
     Active Substance: IPILIMUMAB
     Indication: Malignant melanoma
     Route: 042
     Dates: start: 20141218, end: 20141218
  2. ENCORAFENIB [Suspect]
     Active Substance: ENCORAFENIB
     Indication: Malignant melanoma
     Route: 048
     Dates: start: 20140624, end: 20141210
  3. CLOPIDOGREL [Concomitant]
     Active Substance: CLOPIDOGREL BISULFATE
     Indication: Thrombosis prophylaxis
     Dosage: UNK
     Dates: start: 20140701
  4. ACETAMINOPHEN [Concomitant]
     Active Substance: ACETAMINOPHEN
     Indication: Pain
     Dates: start: 20140126
  5. OXAZEPAM [Concomitant]
     Active Substance: OXAZEPAM
     Indication: Tension
     Dates: start: 20140701
  6. OXYCODONE [Concomitant]
     Active Substance: OXYCODONE
     Indication: Myalgia
     Dates: start: 20140627
  7. PANTOPRAZOLE SODIUM [Concomitant]
     Active Substance: PANTOPRAZOLE SODIUM
     Dates: start: 20140627
  8. ASACOL [Concomitant]
     Active Substance: MESALAMINE

REACTIONS (3)
  - Malignant neoplasm progression [Fatal]
  - Gastroenteritis [Recovered/Resolved]
  - Diarrhoea haemorrhagic [Recovered/Resolved]

NARRATIVE: CASE EVENT DATE: 20141231
